FAERS Safety Report 18224890 (Version 1)
Quarter: 2020Q3

REPORT INFORMATION
  Report Type: Other
  Country: US (occurrence: US)
  Receive Date: 20200903
  Receipt Date: 20200903
  Transmission Date: 20201103
  Serious: Yes (Death)
  Sender: FDA-Public Use
  Company Number: US-ROCHE-2669779

PATIENT
  Sex: Female
  Weight: 167.98 kg

DRUGS (2)
  1. CELLCEPT [Suspect]
     Active Substance: MYCOPHENOLATE MOFETIL\MYCOPHENOLATE MOFETIL HYDROCHLORIDE
     Indication: SCLERODERMA
     Route: 048
     Dates: start: 201802, end: 201806
  2. PREDNISONE. [Concomitant]
     Active Substance: PREDNISONE
     Dates: end: 201806

REACTIONS (4)
  - Myocardial infarction [Fatal]
  - Intentional product use issue [Unknown]
  - Weight increased [Fatal]
  - Off label use [Unknown]
